FAERS Safety Report 5329939-X (Version None)
Quarter: 2007Q2

REPORT INFORMATION
  Report Type: 
  Country: None (occurrence: None)
  Receive Date: 20070521
  Receipt Date: 20070514
  Transmission Date: 20071010
  Serious: Yes (Death)
  Sender: FDA-Public Use
  Company Number: BE-JNJFOC-20070503875

PATIENT
  Age: 80 Year
  Sex: Male

DRUGS (2)
  1. REMINYL [Suspect]
  2. REMINYL [Suspect]
     Indication: DEMENTIA

REACTIONS (2)
  - EPISTAXIS [None]
  - SUDDEN DEATH [None]
